FAERS Safety Report 7432364-9 (Version None)
Quarter: 2011Q2

REPORT INFORMATION
  Report Type: 
  Country: None (occurrence: None)
  Receive Date: 20110414
  Receipt Date: 20110331
  Transmission Date: 20111010
  Serious: Yes (Hospitalization, Disabling)
  Sender: FDA-Public Use
  Company Number: IDA-00517

PATIENT
  Age: 46 Year
  Sex: Female

DRUGS (5)
  1. METOPROLOL SUCCINATE [Suspect]
     Dosage: 25 MG BID / .5 DF BID ORAL FORMULATION: TABLET
     Route: 048
     Dates: start: 20110316, end: 20110301
  2. PHARMATON (CAFFEINE, DISODIUM METHANEARSONATE, NICOTINAMIDE, PYRIDOXIN [Concomitant]
  3. INDERAL [Suspect]
     Indication: ARRHYTHMIA
     Dosage: 10 MG TID ORAL FORMULATION: TABLET
     Route: 048
     Dates: start: 20070101, end: 20110313
  4. (CLOMIPRAMINE) [Concomitant]
  5. ALPRAZOLAM [Concomitant]

REACTIONS (9)
  - VENTRICULAR EXTRASYSTOLES [None]
  - HYPOTENSION [None]
  - WRONG TECHNIQUE IN DRUG USAGE PROCESS [None]
  - DYSPNOEA [None]
  - ARRHYTHMIA [None]
  - TREMOR [None]
  - FATIGUE [None]
  - DIZZINESS [None]
  - TACHYCARDIA [None]
